FAERS Safety Report 9418005 (Version 1)
Quarter: 2013Q3

REPORT INFORMATION
  Report Type: Spontaneous
  Country: US (occurrence: US)
  Receive Date: 20130724
  Receipt Date: 20130724
  Transmission Date: 20140515
  Serious: No
  Sender: FDA-Public Use
  Company Number: US-BAUSCH-BL-2012-000620

PATIENT
  Age: 69 Year
  Sex: Male

DRUGS (2)
  1. OPCON-A [Suspect]
     Indication: DRY EYE
     Dosage: 2 DROPS IN EACH EYE, ONCE DAILY
     Route: 047
     Dates: start: 201208, end: 201208
  2. OPCON-A [Suspect]
     Indication: EYE IRRITATION

REACTIONS (2)
  - Off label use [Recovered/Resolved]
  - Instillation site pain [Recovered/Resolved]
